FAERS Safety Report 6291250-0 (Version None)
Quarter: 2009Q3

REPORT INFORMATION
  Report Type: 
  Country: None (occurrence: None)
  Receive Date: 20090730
  Receipt Date: 20090723
  Transmission Date: 20100115
  Serious: Yes (Other)
  Sender: FDA-Public Use
  Company Number: JP-BAYER-200912314BYL

PATIENT
  Age: 58 Year
  Sex: Male

DRUGS (7)
  1. NEXAVAR [Suspect]
     Indication: HEPATIC NEOPLASM MALIGNANT NON-RESECTABLE
     Dosage: TOTAL DAILY DOSE: 800 MG  UNIT DOSE: 200 MG
     Route: 048
     Dates: start: 20090623, end: 20090712
  2. NEXAVAR [Suspect]
     Dosage: TOTAL DAILY DOSE: 400 MG  UNIT DOSE: 200 MG
     Route: 048
     Dates: start: 20090713
  3. PURSENNID [Concomitant]
     Indication: CONSTIPATION
     Route: 048
     Dates: start: 20090712
  4. MAGNESIUM OXIDE [Concomitant]
     Indication: CONSTIPATION
     Dosage: TOTAL DAILY DOSE: 1.5 G
     Route: 048
     Dates: start: 20090712
  5. PIARLE [Concomitant]
     Indication: HEPATIC ENCEPHALOPATHY
     Route: 048
     Dates: start: 20090708, end: 20090709
  6. PIARLE [Concomitant]
     Route: 048
     Dates: start: 20090710, end: 20090713
  7. PIARLE [Concomitant]
     Dosage: TOTAL DAILY DOSE: 45 ML
     Route: 048
     Dates: start: 20090714

REACTIONS (1)
  - HEPATIC ENCEPHALOPATHY [None]
